FAERS Safety Report 5468004-8 (Version None)
Quarter: 2007Q3

REPORT INFORMATION
  Report Type: 
  Country: None (occurrence: None)
  Receive Date: 20070926
  Receipt Date: 20070919
  Transmission Date: 20080115
  Serious: Yes (Other)
  Sender: FDA-Public Use
  Company Number: DEWYE333819SEP07

PATIENT
  Sex: Female

DRUGS (2)
  1. VENLAFAXINE HCL [Suspect]
     Dosage: 75 MG IN THE MORNING
     Route: 048
  2. DYSMENALGIT [Suspect]
     Indication: DYSMENORRHOEA
     Dosage: ON DEMAND
     Route: 048

REACTIONS (6)
  - CIRCULATORY COLLAPSE [None]
  - DYSPNOEA [None]
  - HYPOAESTHESIA FACIAL [None]
  - PHARYNGEAL OEDEMA [None]
  - TACHYCARDIA [None]
  - TREMOR [None]
